FAERS Safety Report 22367919 (Version 1)
Quarter: 2023Q2

REPORT INFORMATION
  Report Type: Spontaneous
  Country: US (occurrence: None)
  Receive Date: 20230525
  Receipt Date: 20230525
  Transmission Date: 20230721
  Serious: Yes (Death)
  Sender: FDA-Public Use
  Company Number: None

PATIENT
  Age: 49 Year
  Sex: Female

DRUGS (6)
  1. HUMIRA [Suspect]
     Active Substance: ADALIMUMAB
     Indication: Crohn^s disease
     Dosage: 40/0.4 MG/ML ?? INJECT 0.4ML INTO THE SKIN Q 14 DAYS?
     Route: 058
     Dates: start: 20210927
  2. CLONIDINE [Concomitant]
     Active Substance: CLONIDINE
  3. COMPAZINE [Concomitant]
     Active Substance: PROCHLORPERAZINE MALEATE
  4. OXYCODONE IMMEDIATE REL [Concomitant]
  5. REMERON [Concomitant]
     Active Substance: MIRTAZAPINE
  6. ZOFRAN [Concomitant]
     Active Substance: ONDANSETRON HYDROCHLORIDE

REACTIONS (1)
  - Death [None]
